FAERS Safety Report 20320379 (Version 1)
Quarter: 2022Q1

REPORT INFORMATION
  Report Type: Report from Study
  Country: US (occurrence: US)
  Receive Date: 20220111
  Receipt Date: 20220111
  Transmission Date: 20220423
  Serious: Yes (Other)
  Sender: FDA-Public Use
  Company Number: US-ABBVIE-21K-163-4103896-00

PATIENT
  Sex: Male

DRUGS (5)
  1. HUMIRA [Suspect]
     Active Substance: ADALIMUMAB
     Indication: Product used for unknown indication
     Dosage: CITRATE FREE
     Route: 058
  2. HUMIRA [Suspect]
     Active Substance: ADALIMUMAB
     Dosage: CITRATE FREE
     Route: 058
  3. PFIZER-BIONTECH COVID-19 VACCINE [Concomitant]
     Active Substance: TOZINAMERAN
     Indication: COVID-19 immunisation
     Dosage: 1ST DOSE
     Route: 030
     Dates: start: 202103, end: 202103
  4. PFIZER-BIONTECH COVID-19 VACCINE [Concomitant]
     Active Substance: TOZINAMERAN
     Dosage: 2ND DOSE
     Route: 030
     Dates: start: 202108, end: 202108
  5. PFIZER-BIONTECH COVID-19 VACCINE [Concomitant]
     Active Substance: TOZINAMERAN
     Dosage: 3RD DOSE
     Route: 030
     Dates: start: 2021, end: 2021

REACTIONS (9)
  - Prostatic operation [Unknown]
  - Intervertebral disc operation [Unknown]
  - Stent placement [Unknown]
  - Endodontic procedure [Unknown]
  - Ankylosing spondylitis [Unknown]
  - Immunodeficiency [Unknown]
  - Pain [Unknown]
  - Therapeutic product effect incomplete [Unknown]
  - Rheumatoid arthritis [Not Recovered/Not Resolved]
